FAERS Safety Report 14719904 (Version 2)
Quarter: 2018Q2

REPORT INFORMATION
  Report Type: Spontaneous
  Country: IT (occurrence: IT)
  Receive Date: 20180405
  Receipt Date: 20180611
  Transmission Date: 20180711
  Serious: Yes (Other)
  Sender: FDA-Public Use
  Company Number: IT-ROCHE-2099940

PATIENT
  Age: 90 Year
  Sex: Female

DRUGS (6)
  1. RIVOTRIL [Suspect]
     Active Substance: CLONAZEPAM
     Indication: AGITATION
     Dosage: 2,5 MG/ML GOCCE ORALI SOLUZIONE
     Route: 048
     Dates: start: 20180101
  2. NIFEREX (ITALY) [Concomitant]
  3. CARDIOASPIRIN [Concomitant]
     Active Substance: ASPIRIN
  4. CALCIUM CARBONATE. [Concomitant]
     Active Substance: CALCIUM CARBONATE
  5. DIBASE [Concomitant]
     Active Substance: CHOLECALCIFEROL
  6. TRITTICO [Suspect]
     Active Substance: TRAZODONE HYDROCHLORIDE
     Indication: AGITATION
     Route: 048
     Dates: start: 20180101

REACTIONS (2)
  - Hypoxia [Recovered/Resolved]
  - Sopor [Recovered/Resolved]

NARRATIVE: CASE EVENT DATE: 20180228
